FAERS Safety Report 5857799-7 (Version None)
Quarter: 2008Q3

REPORT INFORMATION
  Report Type: 
  Country: None (occurrence: None)
  Receive Date: 20080826
  Receipt Date: 20080821
  Transmission Date: 20090109
  Serious: Yes (Other)
  Sender: FDA-Public Use
  Company Number: US-ABBOTT-08P-163-0471817-00

PATIENT
  Age: 68 Year
  Sex: Female

DRUGS (1)
  1. HUMIRA [Suspect]
     Indication: PSORIASIS

REACTIONS (5)
  - GLOMERULAR FILTRATION RATE ABNORMAL [None]
  - HERPES VIRUS INFECTION [None]
  - RENAL FAILURE [None]
  - THYROID FUNCTION TEST ABNORMAL [None]
  - VISUAL IMPAIRMENT [None]
